FAERS Safety Report 13426167 (Version 1)
Quarter: 2017Q2

REPORT INFORMATION
  Report Type: Spontaneous
  Country: US (occurrence: US)
  Receive Date: 20170411
  Receipt Date: 20170411
  Transmission Date: 20170830
  Serious: No
  Sender: FDA-Public Use
  Company Number: US-JNJFOC-20170121134

PATIENT
  Sex: Female
  Weight: 63.5 kg

DRUGS (3)
  1. METHOTREXATE. [Concomitant]
     Active Substance: METHOTREXATE
     Route: 065
  2. REMICADE [Suspect]
     Active Substance: INFLIXIMAB
     Indication: RHEUMATOID ARTHRITIS
     Route: 042
     Dates: start: 201612
  3. REMICADE [Suspect]
     Active Substance: INFLIXIMAB
     Indication: RHEUMATOID ARTHRITIS
     Route: 042
     Dates: start: 1998

REACTIONS (7)
  - Drug specific antibody present [Unknown]
  - Oedema peripheral [Unknown]
  - Peripheral swelling [Unknown]
  - Pain [Unknown]
  - Carpal tunnel syndrome [Unknown]
  - Joint swelling [Not Recovered/Not Resolved]
  - Glomerular filtration rate decreased [Unknown]
